FAERS Safety Report 6373478-4 (Version None)
Quarter: 2009Q3

REPORT INFORMATION
  Report Type: 
  Country: None (occurrence: None)
  Receive Date: 20090924
  Receipt Date: 20090916
  Transmission Date: 20100115
  Serious: Yes (Other)
  Sender: FDA-Public Use
  Company Number: GB-JNJFOC-20090804329

PATIENT
  Sex: Female
  Weight: 66.68 kg

DRUGS (2)
  1. RISPERDAL CONSTA [Suspect]
     Route: 030
  2. RISPERDAL CONSTA [Suspect]
     Indication: PERSONALITY DISORDER
     Route: 030

REACTIONS (6)
  - ANXIETY [None]
  - INAPPROPRIATE SCHEDULE OF DRUG ADMINISTRATION [None]
  - INFECTIOUS MONONUCLEOSIS [None]
  - MALAISE [None]
  - MOBILITY DECREASED [None]
  - NERVE COMPRESSION [None]
